FAERS Safety Report 24252623 (Version 1)
Quarter: 2024Q3

REPORT INFORMATION
  Report Type: Spontaneous
  Country: FR (occurrence: FR)
  Receive Date: 20240827
  Receipt Date: 20240827
  Transmission Date: 20241016
  Serious: Yes (Hospitalization)
  Sender: ROCHE
  Company Number: None

PATIENT
  Age: 72 Year
  Sex: Male
  Weight: 73 kg

DRUGS (17)
  1. RITUXIMAB [Suspect]
     Active Substance: RITUXIMAB
     Indication: B-cell lymphoma
     Dosage: 640 MG
     Route: 042
     Dates: start: 20240527
  2. DOXORUBICIN [Suspect]
     Active Substance: DOXORUBICIN
     Indication: B-cell lymphoma
     Dosage: 92 MG
     Route: 042
     Dates: start: 20240527
  3. ATOVAQUONE [Suspect]
     Active Substance: ATOVAQUONE
     Indication: Pneumocystis jirovecii pneumonia
     Route: 048
     Dates: start: 20240527, end: 20240607
  4. VINCRISTINE [Suspect]
     Active Substance: VINCRISTINE
     Indication: B-cell lymphoma
     Dosage: 1 MG/PERFUSION
     Route: 042
     Dates: start: 20240527, end: 20240527
  5. CYCLOPHOSPHAMIDE [Suspect]
     Active Substance: CYCLOPHOSPHAMIDE
     Indication: B-cell lymphoma
     Dosage: 1380 MG
     Route: 042
     Dates: start: 20240527
  6. PREDNISONE [Concomitant]
     Active Substance: PREDNISONE
  7. VALACYCLOVIR HYDROCHLORIDE [Concomitant]
     Active Substance: VALACYCLOVIR HYDROCHLORIDE
  8. AMIKACIN [Concomitant]
     Active Substance: AMIKACIN
  9. VANCOMYCIN [Concomitant]
     Active Substance: VANCOMYCIN
  10. OFLOXACIN [Concomitant]
     Active Substance: OFLOXACIN
  11. CEFUROXIME [Concomitant]
     Active Substance: CEFUROXIME
  12. LINEZOLID [Concomitant]
     Active Substance: LINEZOLID
  13. ONDANSETRON [Concomitant]
     Active Substance: ONDANSETRON
  14. ACUPAN [Concomitant]
     Active Substance: NEFOPAM HYDROCHLORIDE
  15. ACETAMINOPHEN [Concomitant]
     Active Substance: ACETAMINOPHEN
  16. MESNA [Concomitant]
     Active Substance: MESNA
  17. PIPERACILLIN SODIUM\TAZOBACTAM SODIUM [Concomitant]
     Active Substance: PIPERACILLIN SODIUM\TAZOBACTAM SODIUM

REACTIONS (1)
  - Hypersensitivity [Recovering/Resolving]

NARRATIVE: CASE EVENT DATE: 20240604
